FAERS Safety Report 6421524-1 (Version None)
Quarter: 2009Q4

REPORT INFORMATION
  Report Type: 
  Country: None (occurrence: None)
  Receive Date: 20091030
  Receipt Date: 20091021
  Transmission Date: 20100525
  Serious: No
  Sender: FDA-Public Use
  Company Number: US-B.I. PHARMACEUTICALS,INC./RIDGEFIELD-2009-BP-12256BP

PATIENT
  Sex: Female

DRUGS (3)
  1. MOBIC [Suspect]
     Indication: ARTHRITIS
     Dosage: 15 MG
     Route: 048
     Dates: start: 20070101, end: 20090904
  2. MOBIC [Suspect]
     Dosage: 15 MG
     Route: 048
     Dates: start: 20091001
  3. SYNTHROID [Concomitant]
     Indication: HYPOTHYROIDISM
     Dosage: 88 MCG
     Route: 048

REACTIONS (2)
  - COELIAC DISEASE [None]
  - DERMATITIS HERPETIFORMIS [None]
